FAERS Safety Report 21462901 (Version 3)
Quarter: 2022Q4

REPORT INFORMATION
  Report Type: Report from Study
  Country: FR (occurrence: FR)
  Receive Date: 20221017
  Receipt Date: 20221128
  Transmission Date: 20230113
  Serious: Yes (Hospitalization, Other)
  Sender: FDA-Public Use
  Company Number: FR-GBT-017172

PATIENT
  Age: 32 Year
  Sex: Male

DRUGS (1)
  1. VOXELOTOR [Suspect]
     Active Substance: VOXELOTOR
     Indication: Haemolytic anaemia
     Route: 048
     Dates: start: 20220701

REACTIONS (3)
  - Thrombocytosis [Recovered/Resolved]
  - Priapism [Unknown]
  - Biopsy kidney [Unknown]

NARRATIVE: CASE EVENT DATE: 20221001
